FAERS Safety Report 10497675 (Version 1)
Quarter: 2014Q4

REPORT INFORMATION
  Report Type: Spontaneous
  Country: IT (occurrence: None)
  Receive Date: 20141002
  Receipt Date: 20141002
  Transmission Date: 20150528
  Serious: Yes (Other)
  Sender: FDA-Public Use
  Company Number: 2556811

PATIENT
  Age: 74 Year
  Sex: Male

DRUGS (1)
  1. OXALIPLATIN. [Suspect]
     Active Substance: OXALIPLATIN
     Indication: PRODUCT USED FOR UNKNOWN INDICATION
     Dosage: TOTAL?(NOT OTHERWISE SPECIFIED)
     Route: 042
     Dates: start: 20140704, end: 20140816

REACTIONS (3)
  - Hypersensitivity [None]
  - Heat stroke [None]
  - Oedema [None]

NARRATIVE: CASE EVENT DATE: 20140816
